FAERS Safety Report 14519391 (Version 1)
Quarter: 2018Q1

REPORT INFORMATION
  Report Type: Spontaneous
  Country: US (occurrence: US)
  Receive Date: 20180209
  Receipt Date: 20180209
  Transmission Date: 20180509
  Serious: Yes (Disabling)
  Sender: FDA-Public Use
  Company Number: None

PATIENT
  Age: 42 Year
  Sex: Female
  Weight: 66.6 kg

DRUGS (4)
  1. TOPAMAX [Concomitant]
     Active Substance: TOPIRAMATE
  2. CIPROFLOXACIN HCL 500 MG [Suspect]
     Active Substance: CIPROFLOXACIN HYDROCHLORIDE
     Indication: SINUSITIS
     Route: 048
     Dates: start: 20171228, end: 20180105
  3. PROBIOTIC [Concomitant]
     Active Substance: PROBIOTICS NOS
  4. PROZAC [Concomitant]
     Active Substance: FLUOXETINE HYDROCHLORIDE

REACTIONS (7)
  - Confusional state [None]
  - Tinnitus [None]
  - Feeling abnormal [None]
  - Head discomfort [None]
  - Pain [None]
  - Immobile [None]
  - Dissociation [None]

NARRATIVE: CASE EVENT DATE: 20171229
